FAERS Safety Report 6524610-0 (Version None)
Quarter: 2010Q1

REPORT INFORMATION
  Report Type: 
  Country: None (occurrence: None)
  Receive Date: 20100104
  Receipt Date: 20091223
  Transmission Date: 20100710
  Serious: Yes (Disabling)
  Sender: FDA-Public Use
  Company Number: PHHY2009IT58476

PATIENT
  Sex: Male

DRUGS (5)
  1. ZOMETA [Suspect]
     Indication: METASTASES TO BONE
     Dosage: 4 MG E.V., UNK
     Route: 042
     Dates: start: 20020301, end: 20050915
  2. AREDIA [Suspect]
     Indication: METASTASES TO BONE
     Dosage: 90 MG E.V., UNK
     Dates: start: 20001002, end: 20020201
  3. FLUTAMIDE [Concomitant]
  4. MEGESTROL ACETATE [Concomitant]
  5. ESTRACYT [Concomitant]

REACTIONS (1)
  - OSTEONECROSIS [None]
